FAERS Safety Report 17405885 (Version 2)
Quarter: 2020Q1

REPORT INFORMATION
  Report Type: Spontaneous
  Country: US (occurrence: US)
  Receive Date: 20200212
  Receipt Date: 20200213
  Transmission Date: 20200409
  Serious: No
  Sender: FDA-Public Use
  Company Number: US-009507513-2002USA000345

PATIENT
  Sex: Female
  Weight: 78.01 kg

DRUGS (1)
  1. NEXPLANON [Suspect]
     Active Substance: ETONOGESTREL
     Dosage: UNK
     Route: 059
     Dates: end: 201906

REACTIONS (5)
  - Implant site urticaria [Not Recovered/Not Resolved]
  - Menstruation irregular [Unknown]
  - Affect lability [Unknown]
  - Incorrect product administration duration [Unknown]
  - Implant site rash [Not Recovered/Not Resolved]
